FAERS Safety Report 8477384-0 (Version None)
Quarter: 2012Q2

REPORT INFORMATION
  Report Type: 
  Country: None (occurrence: None)
  Receive Date: 20120629
  Receipt Date: 20120615
  Transmission Date: 20120825
  Serious: Yes (Hospitalization, Other)
  Sender: FDA-Public Use
  Company Number: US-RANBAXY-2012RR-57358

PATIENT
  Sex: Female

DRUGS (35)
  1. HYDROCHLOROTHIAZIDE [Suspect]
     Indication: PRODUCT USED FOR UNKNOWN INDICATION
     Dosage: UNK
     Route: 065
     Dates: start: 20110307
  2. TOPROL-XL [Suspect]
     Indication: HEART RATE ABNORMAL
     Dosage: 25 MG/DAY
     Route: 048
  3. NORVASC [Suspect]
     Indication: HYPERTENSION
     Dosage: 2.5 MG/DAY
     Route: 048
     Dates: start: 19940101
  4. DILANTIN [Suspect]
     Indication: CONVULSION
     Dosage: UNK
     Route: 065
     Dates: start: 19950101
  5. NITROGLYCERIN [Concomitant]
     Indication: PRODUCT USED FOR UNKNOWN INDICATION
     Dosage: UNK
     Route: 065
  6. XANAX [Suspect]
     Indication: PRODUCT USED FOR UNKNOWN INDICATION
     Dosage: 0.5 MG/DAY
     Route: 065
  7. CLONIDINE [Concomitant]
     Indication: BLOOD PRESSURE
     Dosage: UNK
     Route: 065
  8. METOPROLOL SUCCINATE [Concomitant]
     Indication: PRODUCT USED FOR UNKNOWN INDICATION
     Dosage: UNK
     Route: 065
  9. FUROSEMIDE [Suspect]
     Indication: PRODUCT USED FOR UNKNOWN INDICATION
     Dosage: 20 MG, UNK
     Route: 065
  10. LISINOPRIL [Suspect]
     Indication: PRODUCT USED FOR UNKNOWN INDICATION
     Dosage: UNK
     Route: 065
  11. CIPROFLOXACIN HCL [Suspect]
     Indication: PRODUCT USED FOR UNKNOWN INDICATION
     Dosage: UNK
     Route: 065
  12. NOPALEA [Suspect]
     Indication: MUSCULOSKELETAL PAIN
     Dosage: UNK
     Route: 065
     Dates: start: 20100101
  13. CARDIZEM [Suspect]
     Indication: PRODUCT USED FOR UNKNOWN INDICATION
     Dosage: UNK
     Route: 065
  14. AVAPRO [Suspect]
     Indication: HYPERTENSION
     Dosage: UNK
     Route: 065
  15. MACROBID [Suspect]
     Indication: PRODUCT USED FOR UNKNOWN INDICATION
     Dosage: UNK
     Route: 065
  16. BENICAR [Suspect]
     Indication: HYPERTENSION
     Dosage: UNK
     Route: 048
     Dates: start: 20070101
  17. REGLAN [Suspect]
     Indication: PRODUCT USED FOR UNKNOWN INDICATION
     Dosage: UNK
     Route: 065
  18. LIDOCAINE [Suspect]
     Indication: ANAESTHESIA
     Dosage: UNK
     Route: 065
     Dates: start: 20100513, end: 20100513
  19. NOPALEA [Suspect]
     Indication: BLOOD TRIGLYCERIDES INCREASED
  20. ASCORBIC ACID [Concomitant]
     Indication: PRODUCT USED FOR UNKNOWN INDICATION
     Dosage: UNK
     Route: 065
  21. DIOVAN [Suspect]
     Indication: PRODUCT USED FOR UNKNOWN INDICATION
     Dosage: UNK
     Route: 065
  22. ATACAND [Suspect]
     Indication: RENAL DISORDER
     Dosage: 32 MG, UNK
     Route: 048
     Dates: start: 19950101
  23. BACTRIM [Suspect]
     Indication: PRODUCT USED FOR UNKNOWN INDICATION
     Dosage: UNK
     Route: 065
  24. TOPROL-XL [Suspect]
     Indication: FLUSHING
  25. NEBIVOLOL [Suspect]
     Indication: PRODUCT USED FOR UNKNOWN INDICATION
     Dosage: UNK
     Route: 065
  26. NORVASC [Suspect]
     Dosage: 0.5 MG, UNK
     Route: 048
  27. NORVASC [Suspect]
     Dosage: 2.5 MG, UNK
     Route: 048
     Dates: start: 20100719, end: 20100721
  28. NORVASC [Suspect]
     Dosage: 0.5 MG, UNK
     Route: 048
     Dates: start: 20100722
  29. NORVASC [Suspect]
     Dosage: 5 MG, BID
     Route: 048
     Dates: start: 20100101
  30. LEVOTHYROXINE SODIUM [Concomitant]
     Indication: PRODUCT USED FOR UNKNOWN INDICATION
     Dosage: UNK
     Route: 065
  31. FUROSEMIDE [Suspect]
     Dosage: UNK
     Route: 065
  32. LOSARTAN POTASSIUM [Suspect]
     Indication: PRODUCT USED FOR UNKNOWN INDICATION
     Dosage: UNK
     Route: 065
  33. DEPAKOTE [Suspect]
     Indication: CONVULSION
     Dosage: UNK
     Route: 065
     Dates: start: 19950101, end: 20040101
  34. NORVASC [Suspect]
     Dosage: 5 MG/DAY
     Route: 048
     Dates: end: 19970101
  35. LEVAQUIN [Suspect]
     Indication: PRODUCT USED FOR UNKNOWN INDICATION
     Dosage: UNK
     Route: 065

REACTIONS (35)
  - BLOOD PRESSURE INCREASED [None]
  - ABDOMINAL PAIN [None]
  - MICTURITION FREQUENCY DECREASED [None]
  - BURNING SENSATION [None]
  - PALPITATIONS [None]
  - CONVULSION [None]
  - DRUG INEFFECTIVE [None]
  - LOSS OF CONSCIOUSNESS [None]
  - CYSTITIS [None]
  - FULL BLOOD COUNT DECREASED [None]
  - ANAEMIA [None]
  - CARBUNCLE [None]
  - NERVOUSNESS [None]
  - INSOMNIA [None]
  - CHOLECYSTECTOMY [None]
  - KIDNEY INFECTION [None]
  - DRUG INTERACTION [None]
  - ARTERIOGRAM CORONARY ABNORMAL [None]
  - WEIGHT DECREASED [None]
  - GASTRIC DISORDER [None]
  - BLOOD TRIGLYCERIDES INCREASED [None]
  - HYPOAESTHESIA [None]
  - BLOOD COUNT ABNORMAL [None]
  - FALL [None]
  - HYPERTENSION [None]
  - DIZZINESS [None]
  - URINARY INCONTINENCE [None]
  - FEELING HOT [None]
  - TOE OPERATION [None]
  - INGROWING NAIL [None]
  - PLATELET COUNT DECREASED [None]
  - ARTERIAL OCCLUSIVE DISEASE [None]
  - LUNG NEOPLASM [None]
  - GALLBLADDER DISORDER [None]
  - HEADACHE [None]
